FAERS Safety Report 9290277 (Version 2)
Quarter: 2013Q3

REPORT INFORMATION
  Report Type: Report from Study
  Country: DE (occurrence: DE)
  Receive Date: 20130515
  Receipt Date: 20130916
  Transmission Date: 20140515
  Serious: Yes (Hospitalization)
  Sender: FDA-Public Use
  Company Number: DE-ROCHE-1223416

PATIENT
  Age: 58 Year
  Sex: Male
  Weight: 90 kg

DRUGS (9)
  1. BEVACIZUMAB [Suspect]
     Indication: COLORECTAL CANCER METASTATIC
     Dosage: LAST DOSE PRIOR TO SAE WAS TAKEN ON 30/OCT/2012
     Route: 042
     Dates: start: 20121016, end: 20121030
  2. BEVACIZUMAB [Suspect]
     Route: 042
  3. FLUOROURACIL [Suspect]
     Indication: COLORECTAL CANCER METASTATIC
     Dosage: LAST DOSE PRIOR TO SAE WAS TAKEN ON 30/OCT/2012
     Route: 042
     Dates: start: 20121016, end: 20121030
  4. FLUOROURACIL [Suspect]
     Route: 042
  5. IRINOTECAN [Suspect]
     Indication: COLORECTAL CANCER METASTATIC
     Dosage: LAST DOSE PRIOR TO SAE WAS TAKEN ON 30/OCT/2012
     Route: 042
     Dates: start: 20121016, end: 20121030
  6. IRINOTECAN [Suspect]
     Route: 042
  7. LIPROLOG [Concomitant]
     Indication: DIABETES MELLITUS
  8. RAMIPRIL [Concomitant]
     Indication: HYPERTENSION
  9. SIMVASTATIN [Concomitant]
     Indication: HYPERTENSION

REACTIONS (3)
  - Renal failure acute [Recovered/Resolved]
  - Diarrhoea [Recovered/Resolved]
  - Hypokalaemia [Unknown]
